FAERS Safety Report 7601536-2 (Version None)
Quarter: 2011Q3

REPORT INFORMATION
  Report Type: 
  Country: None (occurrence: None)
  Receive Date: 20110711
  Receipt Date: 20110627
  Transmission Date: 20111222
  Serious: Yes (Hospitalization)
  Sender: FDA-Public Use
  Company Number: PHHY2011US22249

PATIENT
  Age: 29 Year
  Sex: Female
  Weight: 73 kg

DRUGS (7)
  1. PREDNISOLONE [Concomitant]
     Dosage: 500 MG, QD
     Dates: start: 20110112
  2. OMEPRAZOLE [Concomitant]
     Indication: VOMITING
     Dosage: 20 MG, DAILY
     Route: 048
     Dates: start: 20110426
  3. TACROLIMUS [Concomitant]
     Indication: PROPHYLAXIS AGAINST TRANSPLANT REJECTION
     Dosage: 4 MG, DAILY
     Route: 048
     Dates: start: 20100309
  4. PREDNISOLONE [Concomitant]
     Indication: PROPHYLAXIS AGAINST TRANSPLANT REJECTION
     Dosage: 5 MG
     Dates: start: 20090528
  5. RAMIPRIL [Concomitant]
     Indication: PROPHYLAXIS AGAINST TRANSPLANT REJECTION
     Dosage: 7.5 MG,DAILY
     Dates: start: 20110412
  6. PREDNISOLONE [Concomitant]
     Dosage: 10 MG, QD
     Dates: start: 20110112
  7. MYFORTIC [Suspect]
     Indication: RENAL TRANSPLANT
     Dosage: 720 MG, QD
     Route: 048
     Dates: start: 20110115

REACTIONS (2)
  - GLOMERULOSCLEROSIS [None]
  - ABDOMINAL PAIN [None]
